FAERS Safety Report 8145491-8 (Version None)
Quarter: 2012Q1

REPORT INFORMATION
  Report Type: 
  Country: None (occurrence: None)
  Receive Date: 20120217
  Receipt Date: 20120213
  Transmission Date: 20120608
  Serious: Yes (Other)
  Sender: FDA-Public Use
  Company Number: CA-ROXANE LABORATORIES, INC.-2012-RO-00649RO

PATIENT
  Age: 7 Year
  Sex: Female

DRUGS (12)
  1. DEXAMETHASONE [Suspect]
     Indication: ULCERATIVE KERATITIS
     Route: 031
  2. METHOTREXATE [Suspect]
     Route: 048
  3. LOTEPREDNOL ETABONATE [Suspect]
     Indication: KERATITIS
     Route: 031
  4. METHOTREXATE [Suspect]
     Route: 048
  5. PREDNISONE [Suspect]
     Indication: IMMUNOSUPPRESSION
     Dosage: 25 MG
     Route: 048
  6. ATROPINE [Suspect]
     Indication: ULCERATIVE KERATITIS
     Route: 031
  7. PREDNISOLONE ACETATE [Suspect]
     Indication: ULCERATIVE KERATITIS
     Route: 031
  8. GATIFLOXACIN [Suspect]
     Indication: ULCERATIVE KERATITIS
     Route: 031
  9. FOLIC ACID [Suspect]
     Indication: IMMUNOSUPPRESSION
     Dosage: 1 MG
  10. DORZOLAMIDE HYDROCHLORIDE AND TIMOLOL MALEATE [Suspect]
     Indication: INTRAOCULAR PRESSURE INCREASED
     Route: 031
  11. METHOTREXATE [Suspect]
     Indication: IMMUNOSUPPRESSION
     Route: 048
  12. CLARITHROMYCIN [Suspect]
     Indication: PNEUMONIA

REACTIONS (8)
  - PNEUMONIA [None]
  - MOUTH ULCERATION [None]
  - PHOTOPHOBIA [None]
  - CONDITION AGGRAVATED [None]
  - CATARACT SUBCAPSULAR [None]
  - INTRAOCULAR PRESSURE INCREASED [None]
  - EYE PAIN [None]
  - CONJUNCTIVAL HYPERAEMIA [None]
